FAERS Safety Report 14067009 (Version 2)
Quarter: 2019Q3

REPORT INFORMATION
  Report Type: Spontaneous
  Country: RU (occurrence: RU)
  Receive Date: 20171009
  Receipt Date: 20190905
  Transmission Date: 20191004
  Serious: Yes (Hospitalization, Congenital Anomaly, Other)
  Sender: FDA-Public Use
  Company Number: PHHY2017RU144782

PATIENT
  Age: 1 Year
  Weight: 2.8 kg

DRUGS (1)
  1. SEBIVO [Suspect]
     Active Substance: TELBIVUDINE
     Indication: FOETAL EXPOSURE DURING PREGNANCY
     Dosage: MATERNAL DOSE: UNKNOWN
     Route: 064

REACTIONS (25)
  - Sinusitis [Unknown]
  - Urine analysis abnormal [Unknown]
  - Hypokinesia [Unknown]
  - Diarrhoea [Unknown]
  - Electrocardiogram abnormal [Unknown]
  - Hypotony of eye [Unknown]
  - Psychomotor disadaptation syndrome [Unknown]
  - Psychomotor skills impaired [Unknown]
  - Decreased activity [Unknown]
  - Muscle spasms [Unknown]
  - Otitis media acute [Unknown]
  - Iron deficiency anaemia [Unknown]
  - Hydrocephalus [Unknown]
  - Mydriasis [Unknown]
  - Eye pruritus [Unknown]
  - Respiratory tract infection viral [Unknown]
  - Fall [Unknown]
  - Mitochondrial enzyme deficiency [Unknown]
  - Tracheobronchitis [Unknown]
  - Encephalitis [Unknown]
  - Abdominal distension [Unknown]
  - Foetal exposure during pregnancy [Unknown]
  - Rhinitis [Unknown]
  - Pyrexia [Unknown]
  - Asthenia [Unknown]

NARRATIVE: CASE EVENT DATE: 20170322
